FAERS Safety Report 4354646-X (Version None)
Quarter: 2004Q2

REPORT INFORMATION
  Report Type: 
  Country: None (occurrence: None)
  Receive Date: 20040506
  Receipt Date: 20040506
  Transmission Date: 20050107
  Serious: Yes (Other)
  Sender: FDA-Public Use
  Company Number: None

PATIENT
  Age: 73 Year
  Sex: Male
  Weight: 115 kg

DRUGS (10)
  1. ROCEPHIN [Suspect]
     Indication: IMPLANT SITE INFECTION
     Dosage: 1 GRAM Q24 HR IV
     Route: 042
     Dates: start: 20040412, end: 20040426
  2. VANCOMYCIN [Concomitant]
  3. ASPIRIN [Concomitant]
  4. ZOCOR [Concomitant]
  5. ACETAMINOPHEN [Concomitant]
  6. SYNTHROID [Concomitant]
  7. PLAVIX [Concomitant]
  8. HEPARIN [Concomitant]
  9. NACL [Concomitant]
  10. BRIMONIDINE OPTHALMIC [Concomitant]

REACTIONS (1)
  - RASH [None]
